FAERS Safety Report 4748676-3 (Version None)
Quarter: 2005Q3

REPORT INFORMATION
  Report Type: 
  Country: None (occurrence: None)
  Receive Date: 20050817
  Receipt Date: 20050802
  Transmission Date: 20060218
  Serious: Yes (Other)
  Sender: FDA-Public Use
  Company Number: 142830USA

PATIENT
  Age: 5 Year
  Sex: Male
  Weight: 9 kg

DRUGS (2)
  1. CARBOPLATIN [Suspect]
     Dates: start: 20050101
  2. ETOPOSIDE [Concomitant]

REACTIONS (1)
  - MYOCLONIC EPILEPSY [None]
